FAERS Safety Report 7435324-7 (Version None)
Quarter: 2011Q2

REPORT INFORMATION
  Report Type: 
  Country: None (occurrence: None)
  Receive Date: 20110425
  Receipt Date: 20110421
  Transmission Date: 20111010
  Serious: Yes (Hospitalization)
  Sender: FDA-Public Use
  Company Number: A0866936A

PATIENT
  Age: 13 Year
  Sex: Male

DRUGS (3)
  1. INSULIN [Concomitant]
  2. HYDROCORTISONE [Suspect]
     Indication: ADDISON'S DISEASE
     Dosage: 10MG TWICE PER DAY
     Route: 048
  3. FLORINEF [Concomitant]

REACTIONS (7)
  - ADRENOCORTICAL INSUFFICIENCY ACUTE [None]
  - BLOOD SODIUM DECREASED [None]
  - DIABETES MELLITUS [None]
  - PRODUCT QUALITY ISSUE [None]
  - BLOOD CORTICOTROPHIN ABNORMAL [None]
  - MALAISE [None]
  - ACIDOSIS [None]
